FAERS Safety Report 6966103-2 (Version None)
Quarter: 2010Q3

REPORT INFORMATION
  Report Type: 
  Country: None (occurrence: None)
  Receive Date: 20100903
  Receipt Date: 20100824
  Transmission Date: 20110219
  Serious: Yes (Other)
  Sender: FDA-Public Use
  Company Number: PHHY2010DE57112

PATIENT
  Sex: Male

DRUGS (1)
  1. FORADIL / FOR 258A / CGP 25827 [Suspect]

REACTIONS (2)
  - CARDIAC DISORDER [None]
  - MENTAL DISORDER [None]
